FAERS Safety Report 5978833-X (Version None)
Quarter: 2008Q4

REPORT INFORMATION
  Report Type: 
  Country: None (occurrence: None)
  Receive Date: 20081204
  Receipt Date: 20081128
  Transmission Date: 20090506
  Serious: Yes (Other)
  Sender: FDA-Public Use
  Company Number: PHHY2008DE28082

PATIENT
  Sex: Female

DRUGS (5)
  1. EUCREAS [Suspect]
     Indication: DIABETES MELLITUS
     Dosage: 1 DF, BID
     Dates: start: 20080101
  2. LEVEMIR [Concomitant]
     Indication: DIABETES MELLITUS
     Dosage: 12 U, BID
  3. LEVEMIR [Concomitant]
     Dosage: 1/3 LESS (8-0-10 U/D)
  4. HUMALOG [Concomitant]
     Indication: DIABETES MELLITUS
     Dosage: UNK
  5. HUMALOG [Concomitant]
     Dosage: 1-2 U/D

REACTIONS (2)
  - HYPERGLYCAEMIA [None]
  - HYPOGLYCAEMIA [None]
